FAERS Safety Report 17360122 (Version 1)
Quarter: 2020Q1

REPORT INFORMATION
  Report Type: Spontaneous
  Country: US (occurrence: US)
  Receive Date: 20200203
  Receipt Date: 20200203
  Transmission Date: 20200409
  Serious: No
  Sender: FDA-Public Use
  Company Number: US-AUROBINDO-AUR-APL-2019-074689

PATIENT
  Sex: Female

DRUGS (2)
  1. CEFDINIR FOR ORAL SUSPENSION 125 MG/5 ML [Suspect]
     Active Substance: CEFDINIR
     Indication: EAR INFECTION
     Dosage: 3.3 MILLILITER, TWO TIMES A DAY
     Route: 065
     Dates: start: 20191112
  2. NIACIN. [Concomitant]
     Active Substance: NIACIN
     Indication: FUNGAL INFECTION
     Dosage: UNK
     Route: 065

REACTIONS (4)
  - Bruxism [Not Recovered/Not Resolved]
  - Crying [Not Recovered/Not Resolved]
  - Product storage error [Unknown]
  - Psychomotor hyperactivity [Not Recovered/Not Resolved]

NARRATIVE: CASE EVENT DATE: 20191114
